APPROVED DRUG PRODUCT: CENTRAX
Active Ingredient: PRAZEPAM
Strength: 10MG
Dosage Form/Route: TABLET;ORAL
Application: N017415 | Product #001
Applicant: PARKE DAVIS DIV WARNER LAMBERT CO
Approved: Approved Prior to Jan 1, 1982 | RLD: No | RS: No | Type: DISCN